FAERS Safety Report 4774644-1 (Version None)
Quarter: 2005Q3

REPORT INFORMATION
  Report Type: 
  Country: None (occurrence: None)
  Receive Date: 20050921
  Receipt Date: 20050916
  Transmission Date: 20060218
  Serious: Yes (Hospitalization)
  Sender: FDA-Public Use
  Company Number: PHRM2005FR02474

PATIENT
  Age: 75 Year
  Sex: Male

DRUGS (1)
  1. EXELON [Suspect]
     Route: 048
     Dates: start: 20050801

REACTIONS (2)
  - CONCOMITANT DISEASE AGGRAVATED [None]
  - RESPIRATORY FAILURE [None]
